FAERS Safety Report 15269112 (Version 1)
Quarter: 2018Q3

REPORT INFORMATION
  Report Type: Spontaneous
  Country: US (occurrence: US)
  Receive Date: 20180813
  Receipt Date: 20180813
  Transmission Date: 20181010
  Serious: Yes (Hospitalization, Other)
  Sender: FDA-Public Use
  Company Number: US-ASTELLAS-2018US036178

PATIENT
  Age: 45 Year
  Sex: Male

DRUGS (2)
  1. TACROLIMUS. [Suspect]
     Active Substance: TACROLIMUS
     Indication: RENAL TRANSPLANT
     Route: 065
  2. PREDNISONE. [Suspect]
     Active Substance: PREDNISONE
     Indication: RENAL TRANSPLANT
     Dosage: 10 MG, ONCE DAILY (MORE PILLS)
     Route: 065

REACTIONS (10)
  - Pulmonary mass [Recovering/Resolving]
  - Arthralgia [Recovering/Resolving]
  - Deep vein thrombosis [Recovering/Resolving]
  - Metastases to lung [Recovering/Resolving]
  - Skin mass [Recovering/Resolving]
  - Necrotising fasciitis [Recovering/Resolving]
  - Joint swelling [Recovering/Resolving]
  - Mycobacterial infection [Unknown]
  - Skin infection [Unknown]
  - Nocardiosis [Recovering/Resolving]
